FAERS Safety Report 6190472-7 (Version None)
Quarter: 2009Q2

REPORT INFORMATION
  Report Type: 
  Country: None (occurrence: None)
  Receive Date: 20090513
  Receipt Date: 20090513
  Transmission Date: 20091009
  Serious: Yes (Life-Threatening, Hospitalization)
  Sender: FDA-Public Use
  Company Number: None

PATIENT
  Age: 17 Year
  Sex: Male
  Weight: 68.0396 kg

DRUGS (3)
  1. ZONISAMIDE [Suspect]
     Indication: CONVULSION
     Dates: start: 20090507, end: 20090508
  2. SERTRALINE [Suspect]
  3. LAMOTRIGINE [Suspect]

REACTIONS (7)
  - ALTERED STATE OF CONSCIOUSNESS [None]
  - BRADYCARDIA [None]
  - DRUG DEPENDENCE [None]
  - DRUG SCREEN POSITIVE [None]
  - MUSCLE RIGIDITY [None]
  - MYDRIASIS [None]
  - SUICIDE ATTEMPT [None]
